FAERS Safety Report 6302816-3 (Version None)
Quarter: 2009Q3

REPORT INFORMATION
  Report Type: 
  Country: None (occurrence: None)
  Receive Date: 20090810
  Receipt Date: 20090806
  Transmission Date: 20100115
  Serious: Yes (Disabling)
  Sender: FDA-Public Use
  Company Number: FR-BRISTOL-MYERS SQUIBB COMPANY-14730626

PATIENT
  Age: 77 Year
  Sex: Male

DRUGS (1)
  1. MEGACE [Suspect]
     Dosage: INTRODUCED 15 DAYS AGO.
     Dates: start: 20090701

REACTIONS (1)
  - GAIT DISTURBANCE [None]
